FAERS Safety Report 10695554 (Version 2)
Quarter: 2015Q2

REPORT INFORMATION
  Report Type: Spontaneous
  Country: US (occurrence: None)
  Receive Date: 20150105
  Receipt Date: 20150408
  Transmission Date: 20150821
  Serious: Yes (Hospitalization)
  Sender: FDA-Public Use
  Company Number: 54973 AE # 1588

PATIENT
  Age: 7 Month
  Sex: Female
  Weight: 8.26 kg

DRUGS (3)
  1. HYLAND^S BABY COLIC TABLETS [Suspect]
     Active Substance: HOMEOPATHICS
     Indication: ABDOMINAL DISTENSION
     Dosage: 1 TABLET
  2. HYLAND^S BABY COLIC TABLETS [Suspect]
     Active Substance: HOMEOPATHICS
     Indication: ABDOMINAL PAIN
     Dosage: 1 TABLET
  3. MIRALAX [Concomitant]
     Active Substance: POLYETHYLENE GLYCOL 3350

REACTIONS (5)
  - Tremor [None]
  - Asthenia [None]
  - Epilepsy [None]
  - Weight decreased [None]
  - Body temperature decreased [None]

NARRATIVE: CASE EVENT DATE: 20140615
